FAERS Safety Report 24998475 (Version 2)
Quarter: 2025Q1

REPORT INFORMATION
  Report Type: Spontaneous
  Country: US (occurrence: US)
  Receive Date: 20250222
  Receipt Date: 20250301
  Transmission Date: 20250408
  Serious: No
  Sender: SANOFI AVENTIS
  Company Number: US-SA-2025SA042334

PATIENT
  Age: 83 Year
  Sex: Male

DRUGS (1)
  1. DUPIXENT [Suspect]
     Active Substance: DUPILUMAB
     Indication: Neurodermatitis
     Dosage: 300 MG, QOW
     Route: 058
     Dates: start: 202412, end: 20250131

REACTIONS (6)
  - Fatigue [Unknown]
  - Abdominal pain upper [Unknown]
  - Muscle disorder [Unknown]
  - Asthenia [Unknown]
  - Confusional state [Unknown]
  - Arthralgia [Unknown]
